FAERS Safety Report 8810062 (Version 1)
Quarter: 2012Q4

REPORT INFORMATION
  Report Type: 
  Country: FR (occurrence: FR)
  Receive Date: 20120926
  Receipt Date: 20120926
  Transmission Date: 20130627
  Serious: Yes (Hospitalization)
  Sender: FDA-Public Use
  Company Number: FR-GLAXOSMITHKLINE-B0831233A

PATIENT
  Age: 84 Year
  Sex: Female

DRUGS (11)
  1. DEROXAT [Suspect]
     Indication: PRODUCT USED FOR UNKNOWN INDICATION
     Dosage: 10MG Per day
     Route: 048
     Dates: start: 2012, end: 20120808
  2. TRIATEC [Suspect]
     Indication: PRODUCT USED FOR UNKNOWN INDICATION
     Dosage: 7.5MG Per day
     Route: 048
     Dates: start: 2012, end: 20120808
  3. LASILIX [Concomitant]
     Route: 048
     Dates: start: 2012
  4. EUPANTOL [Concomitant]
     Dosage: 20MG Per day
     Route: 048
     Dates: start: 2012
  5. PREDNISONE [Concomitant]
     Dosage: 5MG In the morning
     Route: 048
     Dates: start: 2011
  6. CACIT VITAMINE D3 [Concomitant]
     Dosage: 1UNIT Per day
     Route: 048
     Dates: start: 2012
  7. FOSAMAX [Concomitant]
     Dosage: 70MG Weekly
     Route: 048
     Dates: start: 2012
  8. TRANSIPEG [Concomitant]
     Dosage: 5.9G Per day
     Route: 048
     Dates: start: 2012
  9. AMLODIPINE [Concomitant]
     Dosage: 5MG Per day
     Route: 048
     Dates: start: 2012
  10. PARACETAMOL [Concomitant]
     Route: 048
     Dates: start: 2012
  11. DOMPERIDONE [Concomitant]
     Indication: NAUSEA
     Route: 048
     Dates: start: 20120803

REACTIONS (4)
  - Hyponatraemia [Recovered/Resolved]
  - Orthopnoea [Unknown]
  - Nausea [Unknown]
  - Vomiting [Unknown]
